FAERS Safety Report 17471551 (Version 1)
Quarter: 2020Q1

REPORT INFORMATION
  Report Type: Spontaneous
  Country: FR (occurrence: FR)
  Receive Date: 20200228
  Receipt Date: 20200228
  Transmission Date: 20200409
  Serious: Yes (Other)
  Sender: FDA-Public Use
  Company Number: FR-TEVA-2020-FR-1192291

PATIENT
  Age: 43 Year
  Sex: Female

DRUGS (3)
  1. KLIPAL CODEINE 600 MG/50 MG, COMPRIME [Suspect]
     Active Substance: ACETAMINOPHEN\CODEINE PHOSPHATE
     Dosage: 6 DF,600 MG/50 MG
     Route: 048
     Dates: start: 2012
  2. LEXOMIL ROCHE [Suspect]
     Active Substance: BROMAZEPAM
     Dosage: 3 TO 6 TABLETS / DAY
     Route: 048
     Dates: start: 2009
  3. ZOLPIDEM [Suspect]
     Active Substance: ZOLPIDEM TARTRATE
     Dosage: 2 TO 4 TABLETS / DAY
     Route: 048
     Dates: start: 2019

REACTIONS (2)
  - Hepatic enzyme increased [Recovering/Resolving]
  - Intentional product misuse [Recovering/Resolving]

NARRATIVE: CASE EVENT DATE: 2019
